FAERS Safety Report 25137408 (Version 2)
Quarter: 2025Q3

REPORT INFORMATION
  Report Type: Spontaneous
  Country: US (occurrence: US)
  Receive Date: 20250329
  Receipt Date: 20250710
  Transmission Date: 20251021
  Serious: Yes (Hospitalization)
  Sender: JOHNSON AND JOHNSON
  Company Number: US-JNJFOC-20250377943

PATIENT
  Age: 7 Year
  Sex: Female

DRUGS (2)
  1. REMICADE [Suspect]
     Active Substance: INFLIXIMAB
     Indication: Crohn^s disease
     Route: 041
  2. IBUPROFEN [Suspect]
     Active Substance: IBUPROFEN
     Indication: Pyrexia
     Route: 065

REACTIONS (1)
  - Listeriosis [Unknown]
